FAERS Safety Report 5389076-5 (Version None)
Quarter: 2007Q3

REPORT INFORMATION
  Report Type: 
  Country: None (occurrence: None)
  Receive Date: 20070717
  Receipt Date: 20070709
  Transmission Date: 20080115
  Serious: Yes (Other)
  Sender: FDA-Public Use
  Company Number: US-JNJFOC-20070702117

PATIENT
  Sex: Female
  Weight: 70.31 kg

DRUGS (7)
  1. FENTANYL TRANSDERMAL SYSTEM [Suspect]
     Indication: PAIN
     Route: 062
  2. PREMARIN [Concomitant]
     Indication: DRUG USE FOR UNKNOWN INDICATION
     Route: 048
  3. DILAUDID [Concomitant]
     Indication: BREAKTHROUGH PAIN
     Route: 048
  4. PREVACID [Concomitant]
     Indication: DYSPEPSIA
     Route: 048
  5. ALBUTEROL [Concomitant]
     Indication: ASTHMA
     Dosage: AS NEEDED
     Route: 055
  6. AMBIEN CR [Concomitant]
     Indication: SLEEP DISORDER
     Route: 048
  7. CLONAZEPAM [Concomitant]
     Indication: CONVULSION
     Route: 048

REACTIONS (7)
  - BODY TEMPERATURE INCREASED [None]
  - CHILLS [None]
  - CONVULSION [None]
  - DEVICE LEAKAGE [None]
  - PHARMACEUTICAL PRODUCT COMPLAINT [None]
  - RASH ERYTHEMATOUS [None]
  - WRONG TECHNIQUE IN DRUG USAGE PROCESS [None]
